FAERS Safety Report 8264467-3 (Version None)
Quarter: 2012Q2

REPORT INFORMATION
  Report Type: 
  Country: None (occurrence: None)
  Receive Date: 20120406
  Receipt Date: 20120326
  Transmission Date: 20120825
  Serious: Yes (Other)
  Sender: FDA-Public Use
  Company Number: JP-JNJFOC-20120315114

PATIENT
  Age: 27 Year
  Sex: Female
  Weight: 43 kg

DRUGS (9)
  1. METHOTREXATE [Concomitant]
     Route: 048
     Dates: end: 20100326
  2. REMICADE [Suspect]
     Route: 042
     Dates: start: 20090729
  3. REMICADE [Suspect]
     Indication: RHEUMATOID ARTHRITIS
     Route: 042
     Dates: start: 20100326, end: 20100507
  4. REMICADE [Suspect]
     Dosage: 13TH DOSE OF INFLIXIMAB
     Route: 042
     Dates: start: 20100129
  5. REMICADE [Suspect]
     Dosage: 12TH DOSE OF INFLIXIMAB
     Route: 042
     Dates: start: 20090925, end: 20091120
  6. ETODOLAC [Concomitant]
     Indication: RHEUMATOID ARTHRITIS
     Route: 048
     Dates: start: 20090925, end: 20100326
  7. FOLIC ACID [Concomitant]
     Indication: PROPHYLAXIS
     Route: 048
     Dates: start: 20090925, end: 20100326
  8. REMICADE [Suspect]
     Route: 042
     Dates: start: 20080122
  9. PREDNISOLONE [Concomitant]
     Route: 048
     Dates: start: 20091204, end: 20100326

REACTIONS (1)
  - LUPUS-LIKE SYNDROME [None]
